FAERS Safety Report 7412277-9 (Version None)
Quarter: 2011Q2

REPORT INFORMATION
  Report Type: 
  Country: None (occurrence: None)
  Receive Date: 20110408
  Receipt Date: 20110408
  Transmission Date: 20111010
  Serious: Yes (Hospitalization)
  Sender: FDA-Public Use
  Company Number: None

PATIENT
  Sex: Male

DRUGS (9)
  1. ONDANSETRON [Concomitant]
  2. VIT D [Concomitant]
  3. FENTANYL [Concomitant]
  4. CALCIUM [Concomitant]
  5. MEGA V [Concomitant]
  6. FLOMAX [Concomitant]
  7. REGLAN [Concomitant]
  8. TORISEL [Suspect]
     Indication: BLOOD CALCIUM
     Dosage: TORISEL 25MG IV - Q WEEK
     Route: 042
     Dates: start: 20100812, end: 20110317
  9. HYDROCODONE BITARTRATE [Concomitant]

REACTIONS (2)
  - DISEASE PROGRESSION [None]
  - PAIN [None]
